FAERS Safety Report 21090952 (Version 4)
Quarter: 2022Q3

REPORT INFORMATION
  Report Type: Spontaneous
  Country: US (occurrence: US)
  Receive Date: 20220716
  Receipt Date: 20220916
  Transmission Date: 20221027
  Serious: Yes (Other)
  Sender: FDA-Public Use
  Company Number: US-JNJFOC-20220714952

PATIENT
  Age: 57 Year
  Sex: Female
  Weight: 38.590 kg

DRUGS (2)
  1. TREMFYA [Suspect]
     Active Substance: GUSELKUMAB
     Indication: Psoriatic arthropathy
     Route: 058
     Dates: start: 20210817
  2. TREMFYA [Suspect]
     Active Substance: GUSELKUMAB

REACTIONS (7)
  - Psoriatic arthropathy [Unknown]
  - Device issue [Unknown]
  - Accidental exposure to product [Unknown]
  - Product dose omission issue [Unknown]
  - Body height decreased [Unknown]
  - Therapeutic response decreased [Unknown]
  - Product label issue [Unknown]

NARRATIVE: CASE EVENT DATE: 20220707
